FAERS Safety Report 23178953 (Version 1)
Quarter: 2023Q4

REPORT INFORMATION
  Report Type: Spontaneous
  Country: CZ (occurrence: CZ)
  Receive Date: 20231113
  Receipt Date: 20231113
  Transmission Date: 20240110
  Serious: Yes (Other)
  Sender: FDA-Public Use
  Company Number: CZ-FreseniusKabi-FK202318142

PATIENT
  Age: 57 Year
  Sex: Female

DRUGS (2)
  1. PACLITAXEL [Suspect]
     Active Substance: PACLITAXEL
     Indication: Chemotherapy
     Dosage: 1 DOSE IN ADJUVANT CHEMOTHERAPY, 3 CYCLES OF COMBINED CHEMOTHERAPY.
  2. CARBOPLATIN [Suspect]
     Active Substance: CARBOPLATIN
     Indication: Chemotherapy
     Dosage: 1  DOSE  IN  ADJUVANT  CHEMOTHERAPY,  3  CYCLES  OF  COMBINED CHEMOTHERAPY, 3 CYCLES OF MONOTHERAPY.

REACTIONS (5)
  - Pancytopenia [Unknown]
  - Renal impairment [Unknown]
  - Lymphopenia [Unknown]
  - Toxicity to various agents [Unknown]
  - Drug intolerance [Unknown]
